FAERS Safety Report 17358747 (Version 1)
Quarter: 2020Q1

REPORT INFORMATION
  Report Type: Spontaneous
  Country: US (occurrence: US)
  Receive Date: 20200201
  Receipt Date: 20200201
  Transmission Date: 20200409
  Serious: No
  Sender: FDA-Public Use
  Company Number: US-LANNETT COMPANY, INC.-US-2019LAN001116

PATIENT
  Age: 83 Year
  Sex: Female

DRUGS (3)
  1. ASPIRIN; BUTALBITAL; CAFFEINE [Suspect]
     Active Substance: ASPIRIN\BUTALBITAL\CAFFEINE
     Indication: SOMNOLENCE
     Dosage: 1 PILL
     Route: 048
     Dates: start: 20191024, end: 20191025
  2. ASPIRIN; BUTALBITAL; CAFFEINE [Suspect]
     Active Substance: ASPIRIN\BUTALBITAL\CAFFEINE
     Indication: DIZZINESS
  3. ASPIRIN; BUTALBITAL; CAFFEINE [Suspect]
     Active Substance: ASPIRIN\BUTALBITAL\CAFFEINE
     Indication: HEADACHE

REACTIONS (2)
  - Off label use [Unknown]
  - Drug ineffective [Unknown]

NARRATIVE: CASE EVENT DATE: 20191024
